FAERS Safety Report 8110303-5 (Version None)
Quarter: 2012Q1

REPORT INFORMATION
  Report Type: 
  Country: None (occurrence: None)
  Receive Date: 20120202
  Receipt Date: 20120120
  Transmission Date: 20120608
  Serious: Yes (Other)
  Sender: FDA-Public Use
  Company Number: JP-ROCHE-1034214

PATIENT
  Age: 48 Year
  Sex: Male

DRUGS (5)
  1. DOXORUBICIN HCL [Concomitant]
  2. PREDNISOLONE [Concomitant]
  3. RITUXIMAB [Suspect]
     Indication: LYMPHOMA
     Route: 042
  4. CYCLOPHOSPHAMIDE [Concomitant]
  5. VINCRISTINE SULFATE [Concomitant]

REACTIONS (2)
  - RADIATION RETINOPATHY [None]
  - OPTIC NEUROPATHY [None]
